FAERS Safety Report 4902681-2 (Version None)
Quarter: 2006Q1

REPORT INFORMATION
  Report Type: 
  Country: None (occurrence: None)
  Receive Date: 20060207
  Receipt Date: 20051201
  Transmission Date: 20060701
  Serious: Yes (Hospitalization, Other)
  Sender: FDA-Public Use
  Company Number: JP-MERCK-0512USA00955

PATIENT
  Age: 65 Year
  Sex: Male

DRUGS (12)
  1. PEPCID RPD [Suspect]
     Indication: DRUG USE FOR UNKNOWN INDICATION
     Route: 048
     Dates: start: 20050921, end: 20051202
  2. PEPCID RPD [Suspect]
     Route: 048
     Dates: start: 20050101
  3. PEPCID RPD [Suspect]
     Indication: GASTRITIS
     Route: 048
     Dates: start: 20050921, end: 20051202
  4. PEPCID RPD [Suspect]
     Route: 048
     Dates: start: 20050101
  5. DIOVAN [Suspect]
     Indication: HYPERTENSION
     Route: 048
     Dates: start: 20051030, end: 20051203
  6. DEPAKENE [Concomitant]
     Indication: EPILEPSY
     Route: 048
  7. MARZULENE-S [Concomitant]
     Indication: GASTRITIS
     Route: 048
  8. MAGNESIUM OXIDE [Concomitant]
     Route: 048
     Dates: end: 20051201
  9. DAIKENCHUTO [Concomitant]
     Indication: CONSTIPATION
     Route: 048
     Dates: start: 20051027
  10. ADALAT [Concomitant]
     Indication: HYPERTENSION
     Route: 048
     Dates: start: 20051102
  11. FRANDOL TAPE S [Concomitant]
     Indication: ANGINA PECTORIS
     Route: 048
     Dates: start: 20051007
  12. LANDSEN [Concomitant]
     Indication: EPILEPSY
     Route: 048
     Dates: end: 20051111

REACTIONS (2)
  - CEREBRAL HAEMORRHAGE [None]
  - PLATELET COUNT DECREASED [None]
